FAERS Safety Report 17945981 (Version 7)
Quarter: 2022Q2

REPORT INFORMATION
  Report Type: Report from Study
  Country: CN (occurrence: CN)
  Receive Date: 20200625
  Receipt Date: 20220426
  Transmission Date: 20220721
  Serious: Yes (Death, Hospitalization, Other)
  Sender: FDA-Public Use
  Company Number: NVSC2020CN120506

PATIENT
  Age: 80 Year
  Sex: Male
  Weight: 40 kg

DRUGS (55)
  1. ENTRESTO [Suspect]
     Active Substance: SACUBITRIL\VALSARTAN
     Indication: Cerebral infarction
     Dosage: 50 MG, BID
     Route: 048
     Dates: start: 20200427
  2. ENTRESTO [Suspect]
     Active Substance: SACUBITRIL\VALSARTAN
     Indication: Cardiac failure chronic
     Dosage: 25 MG, BID
     Route: 048
     Dates: start: 20200429
  3. ENTRESTO [Suspect]
     Active Substance: SACUBITRIL\VALSARTAN
     Dosage: 50 MG, BID
     Route: 048
     Dates: start: 20200503
  4. RABEPRAZOLE [Concomitant]
     Active Substance: RABEPRAZOLE
     Indication: Premedication
     Dosage: 20 MG, QD
     Route: 065
     Dates: start: 20200426
  5. RABEPRAZOLE [Concomitant]
     Active Substance: RABEPRAZOLE
     Indication: Gastric disorder
     Dosage: 20 MG, QD
     Route: 065
     Dates: start: 20200503
  6. TRIMETAZIDINE DIHYDROCHLORIDE [Concomitant]
     Active Substance: TRIMETAZIDINE DIHYDROCHLORIDE
     Indication: Cardiovascular event prophylaxis
     Dosage: 35 MG, BID (FOR CARDIAC MUSCULAR NUTRITION)
     Route: 065
     Dates: start: 20200426
  7. TRIMETAZIDINE DIHYDROCHLORIDE [Concomitant]
     Active Substance: TRIMETAZIDINE DIHYDROCHLORIDE
     Dosage: 35 MG, BID
     Route: 065
     Dates: start: 20200503
  8. CLOPIDOGREL BISULFATE [Concomitant]
     Active Substance: CLOPIDOGREL BISULFATE
     Indication: Antiplatelet therapy
     Dosage: 75 MG, QD (ANTI-PLATELET)
     Route: 065
     Dates: start: 20200426
  9. CLOPIDOGREL BISULFATE [Concomitant]
     Active Substance: CLOPIDOGREL BISULFATE
     Dosage: 75 MG, QD
     Route: 065
     Dates: start: 20200503
  10. EZETIMIBE [Concomitant]
     Active Substance: EZETIMIBE
     Indication: Hyperlipidaemia
     Dosage: 10 MG, QD
     Route: 065
     Dates: start: 20200428
  11. EZETIMIBE [Concomitant]
     Active Substance: EZETIMIBE
     Dosage: 10 MG, QD
     Route: 065
     Dates: start: 20200503
  12. PHOSPHOLIPID [Concomitant]
     Active Substance: PHOSPHOLIPID
     Indication: Liver disorder
     Dosage: 2 DF, TID
     Route: 065
     Dates: start: 20200427
  13. PHOSPHOLIPID [Concomitant]
     Active Substance: PHOSPHOLIPID
     Dosage: UNK UNK, UNKNOWN
     Route: 065
     Dates: start: 20200525
  14. SODIUM BICARBONATE [Concomitant]
     Active Substance: SODIUM BICARBONATE
     Indication: Blood uric acid increased
     Dosage: 0.5 MG, TID
     Route: 065
     Dates: start: 20200426
  15. SODIUM BICARBONATE [Concomitant]
     Active Substance: SODIUM BICARBONATE
     Dosage: 0.5 G, TID
     Route: 065
     Dates: start: 20200503
  16. BERAPROST SODIUM [Concomitant]
     Active Substance: BERAPROST SODIUM
     Indication: Cardiovascular disorder
     Dosage: 40 UG, TID (IMPROVE MICRO-CIRCULATION)
     Route: 065
     Dates: start: 20200426
  17. BERAPROST SODIUM [Concomitant]
     Active Substance: BERAPROST SODIUM
     Dosage: 40 UG, TID
     Route: 065
     Dates: start: 20200608
  18. BERAPROST SODIUM [Concomitant]
     Active Substance: BERAPROST SODIUM
     Dosage: 40 UNK
     Route: 065
     Dates: start: 20200619, end: 20200727
  19. DIGOXIN [Concomitant]
     Active Substance: DIGOXIN
     Indication: Cardiac ventricular disorder
     Dosage: 0.125 G, QD (CONTROL VENTRICULAR RATE)
     Route: 065
     Dates: start: 20200429, end: 20200606
  20. FEBUXOSTAT [Concomitant]
     Active Substance: FEBUXOSTAT
     Indication: Blood uric acid increased
     Dosage: 40 MG, QD
     Route: 065
     Dates: start: 20200426
  21. FEBUXOSTAT [Concomitant]
     Active Substance: FEBUXOSTAT
     Dosage: 40 MG, QD
     Route: 065
     Dates: start: 20200503
  22. REBAMIPIDE [Concomitant]
     Active Substance: REBAMIPIDE
     Indication: Abdominal discomfort
     Dosage: 0.1 G, TID
     Route: 065
     Dates: start: 20200426
  23. REBAMIPIDE [Concomitant]
     Active Substance: REBAMIPIDE
     Dosage: 0.1 G, TID
     Route: 065
     Dates: start: 20200503
  24. FUROSEMIDE [Concomitant]
     Active Substance: FUROSEMIDE
     Indication: Polyuria
     Dosage: 20 MG, BID
     Route: 065
     Dates: start: 20200426
  25. FUROSEMIDE [Concomitant]
     Active Substance: FUROSEMIDE
     Dosage: 20 MG, TID
     Route: 065
     Dates: start: 20200525
  26. FUROSEMIDE [Concomitant]
     Active Substance: FUROSEMIDE
     Dosage: 20 MG, TID
     Route: 065
     Dates: start: 20200430
  27. FUROSEMIDE [Concomitant]
     Active Substance: FUROSEMIDE
     Dosage: 20 MG, TID
     Route: 065
     Dates: start: 20200502
  28. FUROSEMIDE [Concomitant]
     Active Substance: FUROSEMIDE
     Dosage: 20 MG, TID
     Route: 065
     Dates: start: 20200608
  29. FUROSEMIDE [Concomitant]
     Active Substance: FUROSEMIDE
     Dosage: 20 MG, QD
     Route: 065
     Dates: start: 20200608
  30. FUROSEMIDE [Concomitant]
     Active Substance: FUROSEMIDE
     Dosage: UNK
     Route: 065
  31. FUROSEMIDE [Concomitant]
     Active Substance: FUROSEMIDE
     Dosage: 20 UNK
     Route: 065
     Dates: start: 20200624, end: 20200624
  32. FUROSEMIDE [Concomitant]
     Active Substance: FUROSEMIDE
     Dosage: 20 UNK
     Route: 065
     Dates: start: 20200726, end: 20200726
  33. SPIRONOLACTONE [Concomitant]
     Active Substance: SPIRONOLACTONE
     Indication: Polyuria
     Dosage: 20 MG, QD
     Route: 065
     Dates: start: 20200426
  34. SPIRONOLACTONE [Concomitant]
     Active Substance: SPIRONOLACTONE
     Dosage: 20 MG, TID
     Route: 065
     Dates: start: 20200525
  35. SPIRONOLACTONE [Concomitant]
     Active Substance: SPIRONOLACTONE
     Dosage: 20 MG, TID
     Route: 065
     Dates: start: 20200608
  36. SPIRONOLACTONE [Concomitant]
     Active Substance: SPIRONOLACTONE
     Dosage: 20 MG, QD
     Route: 065
     Dates: start: 20200608
  37. SPIRONOLACTONE [Concomitant]
     Active Substance: SPIRONOLACTONE
     Dosage: 20 MG, QD
     Route: 065
     Dates: start: 20200620
  38. SPIRONOLACTONE [Concomitant]
     Active Substance: SPIRONOLACTONE
     Dosage: 20 MG
     Route: 065
     Dates: start: 20200726, end: 20200726
  39. METOPROLOL SUCCINATE [Concomitant]
     Active Substance: METOPROLOL SUCCINATE
     Indication: Cardiac ventricular disorder
     Dosage: 47.5 MG, QD (CONTROL VENTRICULAR RATE)
     Route: 065
     Dates: start: 20200426
  40. METOPROLOL SUCCINATE [Concomitant]
     Active Substance: METOPROLOL SUCCINATE
     Indication: Cardiac failure
     Dosage: 47.5 MG
     Route: 065
     Dates: start: 20200726, end: 20200815
  41. TEPRENONE [Concomitant]
     Active Substance: TEPRENONE
     Indication: Abdominal discomfort
     Dosage: 50 MG, TID
     Route: 065
     Dates: start: 20200503
  42. TEPRENONE [Concomitant]
     Active Substance: TEPRENONE
     Dosage: 50 UNK
     Route: 065
     Dates: start: 20200508
  43. ATORVASTATIN CALCIUM [Concomitant]
     Active Substance: ATORVASTATIN CALCIUM
     Indication: Arterial stent insertion
     Dosage: 20 MG, QD
     Route: 065
     Dates: start: 20200619, end: 20200625
  44. ATORVASTATIN CALCIUM [Concomitant]
     Active Substance: ATORVASTATIN CALCIUM
     Indication: Lipids
     Dosage: 40 MG
     Route: 065
     Dates: start: 20200726, end: 20200726
  45. ATORVASTATIN CALCIUM [Concomitant]
     Active Substance: ATORVASTATIN CALCIUM
     Dosage: 40 MG, QD
     Route: 065
     Dates: start: 20200625
  46. FOLIC ACID [Concomitant]
     Active Substance: FOLIC ACID
     Indication: Hyperhomocysteinaemia
     Dosage: 5 MG, QD
     Route: 065
     Dates: start: 20200619
  47. FOLIC ACID [Concomitant]
     Active Substance: FOLIC ACID
     Dosage: 5 MG, TID
     Route: 065
     Dates: start: 20200620, end: 20200726
  48. RIVAROXABAN [Concomitant]
     Active Substance: RIVAROXABAN
     Indication: Atrial fibrillation
     Dosage: 10 MG, QD
     Route: 065
     Dates: start: 20200525
  49. RIVAROXABAN [Concomitant]
     Active Substance: RIVAROXABAN
     Dosage: 15 UNK
     Route: 065
     Dates: start: 20200623, end: 20200726
  50. ISOSORBIDE MONONITRATE [Concomitant]
     Active Substance: ISOSORBIDE MONONITRATE
     Indication: Prophylaxis
     Dosage: 40 MG, QN
     Route: 065
     Dates: start: 20200619
  51. CITICOLINE SODIUM [Concomitant]
     Active Substance: CITICOLINE SODIUM
     Indication: Cranial nerve disorder
     Dosage: 0.2 G, TID
     Route: 065
     Dates: start: 20200726
  52. VALSARTAN [Concomitant]
     Active Substance: VALSARTAN
     Indication: Cardiomyopathy
     Dosage: 160 MG, QD
     Route: 065
     Dates: start: 20200727, end: 20200805
  53. NOREPINEPHRINE [Concomitant]
     Active Substance: NOREPINEPHRINE
     Indication: Blood pressure decreased
     Dosage: 18 MG
     Route: 065
     Dates: start: 20200816, end: 20200817
  54. LIDOCAINE [Concomitant]
     Active Substance: LIDOCAINE
     Indication: Local anaesthesia
     Dosage: 0.1 G
     Route: 065
     Dates: start: 20200816, end: 20200816
  55. FUROSEMIDE [Concomitant]
     Active Substance: FUROSEMIDE
     Indication: Polyuria
     Dosage: 20 MG
     Route: 065
     Dates: start: 20200815, end: 20200815

REACTIONS (24)
  - Cardiac failure chronic [Fatal]
  - Cerebral infarction [Not Recovered/Not Resolved]
  - Subdural haematoma [Not Recovered/Not Resolved]
  - Carotid artery disease [Unknown]
  - Coma [Recovered/Resolved]
  - Brain oedema [Recovered/Resolved]
  - Anuria [Recovering/Resolving]
  - Sepsis [Not Recovered/Not Resolved]
  - Multiple organ dysfunction syndrome [Not Recovered/Not Resolved]
  - Subarachnoid haemorrhage [Not Recovered/Not Resolved]
  - Face oedema [Recovering/Resolving]
  - Chest discomfort [Recovering/Resolving]
  - Cardiac valve disease [Unknown]
  - Stenosis [Recovering/Resolving]
  - Fall [Recovered/Resolved]
  - Dysstasia [Recovered/Resolved]
  - Erythema [Recovered/Resolved]
  - Headache [Recovered/Resolved]
  - Dizziness [Recovered/Resolved]
  - Blood pressure decreased [Unknown]
  - Peripheral circulatory failure [Unknown]
  - Blood lactic acid increased [Unknown]
  - Product use in unapproved indication [Unknown]
  - Prescribed underdose [Unknown]

NARRATIVE: CASE EVENT DATE: 20200503
